FAERS Safety Report 25756125 (Version 1)
Quarter: 2025Q3

REPORT INFORMATION
  Report Type: Spontaneous
  Country: US (occurrence: None)
  Receive Date: 20250902
  Receipt Date: 20250902
  Transmission Date: 20251021
  Serious: Yes (Life-Threatening, Hospitalization)
  Sender: FDA-CTU
  Company Number: None

PATIENT
  Age: 70 Year
  Sex: Male
  Weight: 107.5 kg

DRUGS (13)
  1. EFAVIRENZ\EMTRICITABINE\TENOFOVIR DISOPROXIL FUMARATE [Suspect]
     Active Substance: EFAVIRENZ\EMTRICITABINE\TENOFOVIR DISOPROXIL FUMARATE
     Indication: HIV test positive
     Dosage: 1 TOT - TOTAL DAILY ORAL
     Route: 048
     Dates: start: 20200527, end: 20250831
  2. EFAVIRENZ\EMTRICITABINE\TENOFOVIR DISOPROXIL FUMARATE [Suspect]
     Active Substance: EFAVIRENZ\EMTRICITABINE\TENOFOVIR DISOPROXIL FUMARATE
     Indication: Acquired immunodeficiency syndrome
  3. BENZONATATE [Concomitant]
     Active Substance: BENZONATATE
  4. FAMOTIDINE [Concomitant]
     Active Substance: FAMOTIDINE
  5. FLUOXETINE [Concomitant]
     Active Substance: FLUOXETINE HYDROCHLORIDE
  6. hydrocortisone 20mg [Concomitant]
  7. hydrocortisone 10mg [Concomitant]
  8. MEMANTINE [Concomitant]
     Active Substance: MEMANTINE
  9. methadone 2.5mg [Concomitant]
  10. nystatin 100000unit/ml suspension [Concomitant]
  11. OLANZAPINE [Concomitant]
     Active Substance: OLANZAPINE
  12. potassium chloride ER 20mEq [Concomitant]
  13. TAMSULOSIN [Concomitant]
     Active Substance: TAMSULOSIN

REACTIONS (4)
  - Septic shock [None]
  - Acute kidney injury [None]
  - Hypernatraemia [None]
  - Therapy change [None]

NARRATIVE: CASE EVENT DATE: 20250823
